FAERS Safety Report 5229919-9 (Version None)
Quarter: 2007Q1

REPORT INFORMATION
  Report Type: 
  Country: None (occurrence: None)
  Receive Date: 20070206
  Receipt Date: 20060719
  Transmission Date: 20070707
  Serious: No
  Sender: FDA-Public Use
  Company Number: US-GLAXOSMITHKLINE-A0610514A

PATIENT
  Age: 42 Year
  Sex: Female

DRUGS (4)
  1. PAXIL [Suspect]
     Indication: DRUG USE FOR UNKNOWN INDICATION
     Dosage: 25MG PER DAY
     Route: 048
     Dates: start: 20050601, end: 20060601
  2. PAXIL CR [Suspect]
     Indication: DRUG USE FOR UNKNOWN INDICATION
     Route: 048
  3. WELLBUTRIN XL [Suspect]
     Indication: PREMENSTRUAL SYNDROME
     Dosage: 150MG PER DAY
     Route: 048
     Dates: start: 20060601
  4. NO CONCURRENT MEDICATION [Concomitant]

REACTIONS (2)
  - INSOMNIA [None]
  - WEIGHT INCREASED [None]
